FAERS Safety Report 15611789 (Version 1)
Quarter: 2018Q4

REPORT INFORMATION
  Report Type: Spontaneous
  Country: FR (occurrence: FR)
  Receive Date: 20181113
  Receipt Date: 20181113
  Transmission Date: 20190205
  Serious: Yes (Hospitalization)
  Sender: FDA-Public Use
  Company Number: FR-ACCORD-091886

PATIENT
  Age: 65 Year
  Sex: Female
  Weight: 62 kg

DRUGS (19)
  1. STAGID [Concomitant]
     Active Substance: METFORMIN PAMOATE
     Dosage: 1 DF (700), 3X/DAY
  2. UVEDOSE [Concomitant]
     Active Substance: CHOLECALCIFEROL
     Dosage: 100000 UNK, UNK
  3. LYRIC [Concomitant]
     Dosage: 1 DF (150), 2X/DAY
  4. CALCIDOSE VITAMINE D [Concomitant]
     Active Substance: CALCIUM\CHOLECALCIFEROL
     Dosage: 1 DF, 1X/DAY
  5. OXYCONTIN [Concomitant]
     Active Substance: OXYCODONE HYDROCHLORIDE
     Dosage: 1 DF (5), 2X/DAY
  6. DOLIPRANE [Concomitant]
     Active Substance: ACETAMINOPHEN
     Dosage: 1 DF(1000), 3X/DAY
  7. ARACYTIN [Suspect]
     Active Substance: CYTARABINE
     Indication: DIFFUSE LARGE B-CELL LYMPHOMA
     Dosage: 1650 MG, ONE INFUSION EVERY 12 HOURS, 4 INFUSIONS IN TOTAL, 1650 MG ON 03-MAR-2015 TO 05-MAR-2015
     Route: 037
     Dates: start: 20150227, end: 20150325
  8. LOVENOX [Concomitant]
     Active Substance: ENOXAPARIN SODIUM
     Dosage: 0.4 UNK, UNK FOR 1 MONTH
  9. VANCOMYCIN [Concomitant]
     Active Substance: VANCOMYCIN
     Dosage: UNK
     Dates: start: 20141003
  10. ECONAZOLE. [Concomitant]
     Active Substance: ECONAZOLE NITRATE
     Dosage: UNK
  11. FORLAX [Concomitant]
     Active Substance: POLYETHYLENE GLYCOL 4000
     Dosage: 20 UNK (10X2), 1X/DAY
  12. DIAMICRON [Concomitant]
     Active Substance: GLICLAZIDE
     Dosage: 2 DF (60X2), 1X/DAY
  13. ROSUVASTATIN. [Concomitant]
     Active Substance: ROSUVASTATIN
     Dosage: 1 DF(10), 1X/DAY
  14. PRIMPERAN [Concomitant]
     Active Substance: METOCLOPRAMIDE HYDROCHLORIDE
     Dosage: 1 DF (10), 3X/DAY
  15. LANTUS [Concomitant]
     Active Substance: INSULIN GLARGINE
     Dosage: 20 IU, 1X/DAY
  16. METHOTREXATE. [Suspect]
     Active Substance: METHOTREXATE
     Indication: METASTASES TO MENINGES
     Dosage: 15 MG FROM 27-FEB-2015 TO 25-MAR-2015
     Route: 042
     Dates: start: 20150227, end: 20150227
  17. MABTHERA [Suspect]
     Active Substance: RITUXIMAB
     Indication: DIFFUSE LARGE B-CELL LYMPHOMA
     Dosage: 610 MG, 1X/DAY
     Route: 042
     Dates: start: 20150324, end: 20150324
  18. HYTACAND [Concomitant]
     Active Substance: CANDESARTAN CILEXETIL\HYDROCHLOROTHIAZIDE
     Dosage: 1 DF (8/12.5), 1X/DAY
  19. JANUVIA [Concomitant]
     Active Substance: SITAGLIPTIN PHOSPHATE
     Dosage: 1 DF (100), 1X/DAY

REACTIONS (4)
  - Altered state of consciousness [Not Recovered/Not Resolved]
  - Off label use [Unknown]
  - Osmotic demyelination syndrome [Not Recovered/Not Resolved]
  - Aphasia [Not Recovered/Not Resolved]

NARRATIVE: CASE EVENT DATE: 20150406
